FAERS Safety Report 12930119 (Version 4)
Quarter: 2017Q2

REPORT INFORMATION
  Report Type: Report from Study
  Country: CO (occurrence: CO)
  Receive Date: 20161110
  Receipt Date: 20170417
  Transmission Date: 20170830
  Serious: Yes (Hospitalization, Disabling, Other)
  Sender: FDA-Public Use
  Company Number: CO-REGENERON PHARMACEUTICALS, INC.-2016-23705

PATIENT

DRUGS (3)
  1. EYLEA [Suspect]
     Active Substance: AFLIBERCEPT
     Indication: DIABETIC RETINAL OEDEMA
     Dosage: AT THE BEGINNING OF THE TREATMENT, THE PATIENT APPLIED 1 INJECTION EACH MONTH FOR 5 MONTHS
     Route: 031
     Dates: start: 20150201
  2. EYLEA [Suspect]
     Active Substance: AFLIBERCEPT
     Dosage: 1 DF, Q2MON, RECEIVED A TOTAL OF 8 APPLICATIONS IN RIGHT EYE
     Route: 031
     Dates: end: 20160601
  3. EYLEA [Suspect]
     Active Substance: AFLIBERCEPT
     Dosage: LAST DOSE RECEIVED
     Dates: end: 201611

REACTIONS (3)
  - Glaucoma [Recovering/Resolving]
  - Blindness unilateral [Not Recovered/Not Resolved]
  - Cholelithiasis [Recovered/Resolved]

NARRATIVE: CASE EVENT DATE: 20160802
